FAERS Safety Report 9776779 (Version 3)
Quarter: 2014Q1

REPORT INFORMATION
  Report Type: Spontaneous
  Country: JP (occurrence: JP)
  Receive Date: 20131220
  Receipt Date: 20140131
  Transmission Date: 20141002
  Serious: Yes (Other)
  Sender: FDA-Public Use
  Company Number: JP-UCBSA-106572

PATIENT
  Age: 72 Year
  Sex: Female
  Weight: 50 kg

DRUGS (3)
  1. CIMZIA [Suspect]
     Indication: RHEUMATOID ARTHRITIS
     Dosage: 200MG SYRINGE
     Route: 058
     Dates: start: 20131125, end: 2013
  2. PROGRAF [Concomitant]
     Route: 048
     Dates: start: 20130427, end: 20131207
  3. AZULFIDINE-EN [Concomitant]
     Route: 048
     Dates: start: 20130427, end: 20131207

REACTIONS (1)
  - Rash generalised [Recovered/Resolved]
